FAERS Safety Report 4288960-3 (Version None)
Quarter: 2004Q1

REPORT INFORMATION
  Report Type: 
  Country: None (occurrence: None)
  Receive Date: 20040205
  Receipt Date: 20030207
  Transmission Date: 20041129
  Serious: Yes (Hospitalization)
  Sender: FDA-Public Use
  Company Number: ETHYOL-02293

PATIENT
  Age: 48 Year
  Sex: Female
  Weight: 53.978 kg

DRUGS (2)
  1. ETHYOL [Suspect]
     Dosage: 500 MG, 5 IN 1 WK, SUBCUTANEOUS
     Route: 058
     Dates: start: 20020701, end: 20020708
  2. NORVASC [Concomitant]

REACTIONS (3)
  - DEHYDRATION [None]
  - NAUSEA [None]
  - VOMITING [None]
